FAERS Safety Report 18428324 (Version 1)
Quarter: 2020Q4

REPORT INFORMATION
  Report Type: Spontaneous
  Country: US (occurrence: US)
  Receive Date: 20201026
  Receipt Date: 20201026
  Transmission Date: 20210114
  Serious: Yes (Other)
  Sender: FDA-Public Use
  Company Number: US-B.I. PHARMACEUTICALS,INC./RIDGEFIELD-2020-BI-055917

PATIENT
  Age: 62 Year
  Sex: Female

DRUGS (3)
  1. TRADJENTA [Suspect]
     Active Substance: LINAGLIPTIN
     Indication: TYPE 2 DIABETES MELLITUS
     Dosage: 5MG QD
     Route: 065
     Dates: start: 201901, end: 201903
  2. JENTADUETO [Suspect]
     Active Substance: LINAGLIPTIN\METFORMIN HYDROCHLORIDE
     Indication: TYPE 2 DIABETES MELLITUS
     Dosage: 5MG/1000MG QD
     Route: 065
     Dates: start: 2016, end: 201901
  3. TRADJENTA [Suspect]
     Active Substance: LINAGLIPTIN
     Dosage: 5MG QD
     Route: 065
     Dates: start: 20201002

REACTIONS (5)
  - Peripheral swelling [Not Recovered/Not Resolved]
  - Renal disorder [Not Recovered/Not Resolved]
  - Cerebrovascular accident [Recovering/Resolving]
  - Atrial fibrillation [Not Recovered/Not Resolved]
  - Rash [Not Recovered/Not Resolved]

NARRATIVE: CASE EVENT DATE: 20181224
